FAERS Safety Report 24822357 (Version 1)
Quarter: 2025Q1

REPORT INFORMATION
  Report Type: Spontaneous
  Country: US (occurrence: US)
  Receive Date: 20250108
  Receipt Date: 20250108
  Transmission Date: 20250409
  Serious: Yes (Hospitalization, Other)
  Sender: NOVITIUM PHARMA
  Company Number: US-NOVITIUMPHARMA-2025USNVP00017

PATIENT
  Age: 72 Year
  Sex: Male

DRUGS (1)
  1. PYRIDOSTIGMINE BROMIDE [Suspect]
     Active Substance: PYRIDOSTIGMINE BROMIDE
     Indication: Intestinal pseudo-obstruction

REACTIONS (2)
  - Drug-induced liver injury [Recovering/Resolving]
  - Mental impairment [Recovering/Resolving]
